FAERS Safety Report 12538188 (Version 7)
Quarter: 2016Q3

REPORT INFORMATION
  Report Type: Spontaneous
  Country: US (occurrence: US)
  Receive Date: 20160707
  Receipt Date: 20160926
  Transmission Date: 20161109
  Serious: Yes (Hospitalization, Other)
  Sender: FDA-Public Use
  Company Number: US-ACTELION-A-US2016-138731

PATIENT
  Age: 83 Year
  Sex: Female
  Weight: 72.56 kg

DRUGS (13)
  1. OPSUMIT [Suspect]
     Active Substance: MACITENTAN
     Indication: PULMONARY ARTERIAL HYPERTENSION
     Dosage: 10 MG, QD
     Route: 048
     Dates: start: 20140310
  2. GABAPENTIN. [Concomitant]
     Active Substance: GABAPENTIN
     Dosage: 300 MG, UNK
  3. K-DUR [Concomitant]
     Active Substance: POTASSIUM CHLORIDE
     Dosage: 20 MEQ, QD
     Route: 048
  4. LASIX [Concomitant]
     Active Substance: FUROSEMIDE
     Dosage: 40 MG, BID X ONE WEEK, THEN 40 MG QD
     Route: 048
  5. SILDENAFIL. [Concomitant]
     Active Substance: SILDENAFIL
     Dosage: 40 MG, TID
     Route: 048
  6. ALLEGRA [Concomitant]
     Active Substance: FEXOFENADINE HYDROCHLORIDE
     Dosage: 180 MG, PRN
  7. PLAVIX [Concomitant]
     Active Substance: CLOPIDOGREL BISULFATE
     Dosage: 75 MG, QD WITH OR WITHOUT FOOD
  8. KLOR-CON [Concomitant]
     Active Substance: POTASSIUM CHLORIDE
     Dosage: 16 MEQ, AM AND 24 MEQ PM
     Route: 048
  9. REMODULIN [Concomitant]
     Active Substance: TREPROSTINIL
     Route: 058
  10. OXYGEN. [Concomitant]
     Active Substance: OXYGEN
     Dosage: 5-6 LITRES
  11. LASIX [Concomitant]
     Active Substance: FUROSEMIDE
     Dosage: 40 MG, BID
     Route: 048
  12. LIPITOR [Concomitant]
     Active Substance: ATORVASTATIN CALCIUM
     Dosage: 20 MG, UNK
  13. LACTULOSE. [Concomitant]
     Active Substance: LACTULOSE
     Dosage: 10G/15ML, QD TO BID PRN CONSTIPATION

REACTIONS (19)
  - Ascites [Unknown]
  - Fluid retention [Unknown]
  - Wheelchair user [Unknown]
  - Disease progression [Unknown]
  - Fatigue [Unknown]
  - Dysuria [Unknown]
  - Condition aggravated [Unknown]
  - Renal disorder [Unknown]
  - Renal pain [Unknown]
  - Oedema peripheral [Unknown]
  - Dyspnoea [Unknown]
  - Pleural effusion [Unknown]
  - Somnolence [Unknown]
  - Peripheral swelling [Recovering/Resolving]
  - Dizziness [Unknown]
  - Pericardial effusion [Unknown]
  - Urine output decreased [Unknown]
  - Right ventricular dysfunction [Unknown]
  - Liver disorder [Unknown]
